FAERS Safety Report 5114797-9 (Version None)
Quarter: 2006Q3

REPORT INFORMATION
  Report Type: 
  Country: None (occurrence: None)
  Receive Date: 20060921
  Receipt Date: 20060908
  Transmission Date: 20061208
  Serious: Yes (Other)
  Sender: FDA-Public Use
  Company Number: 2006-BP-10565RO

PATIENT
  Age: 42 Year
  Sex: Male

DRUGS (4)
  1. CYCLOPHOSPHAMIDE [Suspect]
     Indication: RHABDOMYOSARCOMA
     Dosage: 5400 MG/DAY X 3 DAYS
  2. VINCRISTINE [Suspect]
     Indication: RHABDOMYOSARCOMA
     Dosage: 2 MG ON DAY 1
  3. ACTYNOMICIN D (DACTINOMYCIN) [Suspect]
     Indication: RHABDOMYOSARCOMA
     Dosage: 2.7 MG ON DAY 1
  4. MESNA [Concomitant]

REACTIONS (17)
  - GENERAL PHYSICAL HEALTH DETERIORATION [None]
  - HAEMOGLOBIN DECREASED [None]
  - HEPATIC ENZYME INCREASED [None]
  - HEPATOCELLULAR DAMAGE [None]
  - LUNG INFILTRATION [None]
  - MUCOSAL INFLAMMATION [None]
  - NEUTROPHIL COUNT DECREASED [None]
  - OVERDOSE [None]
  - PERICARDIAL EFFUSION [None]
  - PLATELET COUNT DECREASED [None]
  - PLEURAL EFFUSION [None]
  - PYREXIA [None]
  - RESPIRATORY DISTRESS [None]
  - VENTRICULAR DYSFUNCTION [None]
  - VOMITING [None]
  - WHITE BLOOD CELL COUNT DECREASED [None]
  - WRONG DRUG ADMINISTERED [None]
